FAERS Safety Report 9364642 (Version 1)
Quarter: 2013Q2

REPORT INFORMATION
  Report Type: Spontaneous
  Country: FR (occurrence: FR)
  Receive Date: 20130624
  Receipt Date: 20130624
  Transmission Date: 20140414
  Serious: Yes (Life-Threatening, Hospitalization)
  Sender: FDA-Public Use
  Company Number: FR-BRISTOL-MYERS SQUIBB COMPANY-19013390

PATIENT
  Age: 75 Year
  Sex: Female

DRUGS (16)
  1. SKENAN PROL RELEASE GRAN CAPS 60 MG [Suspect]
     Indication: PAIN
     Route: 048
     Dates: start: 20130305, end: 20130305
  2. APROVEL TABS 300 MG [Suspect]
     Route: 048
     Dates: end: 20130305
  3. VICTOZA [Suspect]
     Indication: DIABETES MELLITUS
     Route: 058
     Dates: start: 20130224, end: 20130305
  4. VALACICLOVIR [Suspect]
     Dosage: 6 TABLETS /D
     Route: 048
     Dates: start: 20130303, end: 20130305
  5. GABAPENTIN [Concomitant]
     Route: 048
     Dates: start: 20130305
  6. TOPALGIC [Concomitant]
     Route: 048
     Dates: start: 20130301
  7. LEVOFLOXACIN [Concomitant]
     Indication: HERPES ZOSTER
     Route: 048
     Dates: start: 20130228, end: 20130309
  8. LEVOFLOXACIN [Concomitant]
     Indication: URINARY TRACT INFECTION
     Route: 048
     Dates: start: 20130228, end: 20130309
  9. ACUPAN [Concomitant]
     Dosage: TABS
     Dates: start: 20130301
  10. PRIMPERAN [Concomitant]
     Route: 048
     Dates: start: 20130301
  11. NOVORAPID [Concomitant]
     Route: 058
  12. INEXIUM [Concomitant]
     Dosage: GASTRO-RESISTANT TABLET
     Route: 048
  13. PLAVIX [Concomitant]
     Dosage: FILM-COATED TABLET
     Route: 048
  14. LEVOTHYROX [Concomitant]
     Dosage: SCORED TABLET
     Route: 048
  15. NOVONORM [Concomitant]
     Route: 048
  16. LASILIX [Concomitant]
     Route: 048

REACTIONS (4)
  - Renal failure acute [Recovered/Resolved]
  - Anuria [Recovered/Resolved]
  - Hypoventilation [Recovered/Resolved]
  - Coma [Recovered/Resolved]
